FAERS Safety Report 13123947 (Version 4)
Quarter: 2017Q1

REPORT INFORMATION
  Report Type: Report from Study
  Country: FR (occurrence: FR)
  Receive Date: 20170118
  Receipt Date: 20170313
  Transmission Date: 20170428
  Serious: Yes (Hospitalization)
  Sender: FDA-Public Use
  Company Number: FR-ROCHE-1879318

PATIENT
  Age: 51 Year
  Sex: Male
  Weight: 75 kg

DRUGS (4)
  1. ZELITREX [Concomitant]
     Active Substance: VALACYCLOVIR HYDROCHLORIDE
     Indication: PROPHYLAXIS
     Route: 048
     Dates: start: 20170110
  2. ALLOPURINOL. [Concomitant]
     Active Substance: ALLOPURINOL
     Indication: HYPERURICAEMIA
     Route: 048
     Dates: start: 20170110
  3. OBINUTUZUMAB [Suspect]
     Active Substance: OBINUTUZUMAB
     Indication: B-CELL LYMPHOMA
     Dosage: CYCLE 1 (DAY 2,8,15)
     Route: 042
     Dates: start: 20170111
  4. CC-122 [Suspect]
     Active Substance: INVESTIGATIONAL PRODUCT
     Indication: NON-HODGKIN^S LYMPHOMA
     Dosage: EVERY DAY  (QD) ON DAY 1 FOR 5 CONSECUTIVE DAYS
     Route: 048
     Dates: start: 20170110

REACTIONS (2)
  - Pyrexia [Not Recovered/Not Resolved]
  - Cytokine release syndrome [Not Recovered/Not Resolved]

NARRATIVE: CASE EVENT DATE: 20170111
